FAERS Safety Report 9808022 (Version 1)
Quarter: 2014Q1

REPORT INFORMATION
  Report Type: Spontaneous
  Country: GB (occurrence: None)
  Receive Date: 20140108
  Receipt Date: 20140108
  Transmission Date: 20141002
  Serious: Yes (Other)
  Sender: FDA-Public Use
  Company Number: 2013-004096

PATIENT
  Age: 53 Year
  Sex: Female
  Weight: 88 kg

DRUGS (3)
  1. DORYX [Suspect]
     Dosage: 100 MG, BID; TWO CAPSULES STRAIGHT AWAY THEN ONE A DAILY, ORAL
     Route: 048
     Dates: start: 20131203, end: 20131203
  2. AMOXYCILLIN             /00249601/ (AMOXICILLIN) [Concomitant]
  3. NORIDAY                 /00044901/ (NORETHISTERONE) [Concomitant]

REACTIONS (6)
  - Tremor [None]
  - Panic attack [None]
  - Dissociation [None]
  - Feeling abnormal [None]
  - Decreased appetite [None]
  - Fear [None]
